FAERS Safety Report 7205366-5 (Version None)
Quarter: 2010Q4

REPORT INFORMATION
  Report Type: 
  Country: None (occurrence: None)
  Receive Date: 20101231
  Receipt Date: 20101223
  Transmission Date: 20110411
  Serious: Yes (Hospitalization)
  Sender: FDA-Public Use
  Company Number: US-US-EMD SERONO, INC.-7026000

PATIENT
  Sex: Female

DRUGS (3)
  1. REBIF [Suspect]
     Indication: RELAPSING-REMITTING MULTIPLE SCLEROSIS
     Route: 058
     Dates: start: 20050501
  2. SOLU-MEDROL [Concomitant]
     Indication: RELAPSING-REMITTING MULTIPLE SCLEROSIS
  3. UNSPECIFIED THYROID SUPPLEMENTATION [Concomitant]
     Indication: HYPOTHYROIDISM

REACTIONS (10)
  - ASTHENIA [None]
  - CELLULITIS [None]
  - DEMYELINATION [None]
  - FALL [None]
  - HEADACHE [None]
  - INJECTION SITE INFECTION [None]
  - INJURY [None]
  - LEUKOCYTOSIS [None]
  - PYREXIA [None]
  - URINARY TRACT INFECTION [None]
